FAERS Safety Report 22189426 (Version 1)
Quarter: 2023Q2

REPORT INFORMATION
  Report Type: Other
  Country: ES (occurrence: ES)
  Receive Date: 20230410
  Receipt Date: 20230410
  Transmission Date: 20230722
  Serious: Yes (Hospitalization)
  Sender: FDA-Public Use
  Company Number: None

PATIENT

DRUGS (5)
  1. SIMVASTATIN [Interacting]
     Active Substance: SIMVASTATIN
     Indication: Product used for unknown indication
     Dosage: 40 MILLIGRAM, QD
     Route: 048
     Dates: start: 20130218, end: 20221030
  2. PRADAXA [Interacting]
     Active Substance: DABIGATRAN ETEXILATE MESYLATE
     Indication: Atrial fibrillation
     Dosage: 220 MILLIGRAM, QD
     Route: 048
     Dates: start: 20220929
  3. ALZERTA [Concomitant]
     Indication: Product used for unknown indication
     Dosage: 13.3 MILLIGRAM, QD
     Route: 062
     Dates: start: 20161111
  4. SPIRONOLACTONE [Concomitant]
     Active Substance: SPIRONOLACTONE
     Indication: Product used for unknown indication
     Dosage: 0.25 MILLIGRAM, QD
     Route: 048
     Dates: start: 20150529
  5. MEMANTINE [Interacting]
     Active Substance: MEMANTINE
     Indication: Product used for unknown indication
     Dosage: 20 MILLIGRAM, QD
     Route: 048
     Dates: start: 20151204

REACTIONS (2)
  - Lower gastrointestinal haemorrhage [Recovered/Resolved]
  - Asthenia [Recovering/Resolving]

NARRATIVE: CASE EVENT DATE: 20221024
